FAERS Safety Report 7532002-0 (Version None)
Quarter: 2011Q2

REPORT INFORMATION
  Report Type: 
  Country: None (occurrence: None)
  Receive Date: 20110608
  Receipt Date: 20110524
  Transmission Date: 20111010
  Serious: Yes (Other)
  Sender: FDA-Public Use
  Company Number: PHHY2011BR46167

PATIENT
  Age: 10 Year
  Sex: Female

DRUGS (2)
  1. SANDIMMUNE [Suspect]
     Dosage: 25 MG 50
  2. CORTISONE ACETATE [Concomitant]
     Dosage: UNK

REACTIONS (3)
  - SWELLING [None]
  - DYSPNOEA [None]
  - KIDNEY INFECTION [None]
